FAERS Safety Report 8255139-X (Version None)
Quarter: 2012Q2

REPORT INFORMATION
  Report Type: 
  Country: None (occurrence: None)
  Receive Date: 20120403
  Receipt Date: 20120329
  Transmission Date: 20120825
  Serious: No
  Sender: FDA-Public Use
  Company Number: US-PFIZER INC-2012080803

PATIENT
  Sex: Female
  Weight: 69.841 kg

DRUGS (5)
  1. PRISTIQ [Suspect]
     Dosage: UNK
  2. PRONUTRIENTS PROBIOTICS [Suspect]
     Indication: CONSTIPATION
     Dosage: 1 G, DAILY
     Route: 048
     Dates: start: 20120301, end: 20120301
  3. NEXIUM [Concomitant]
     Indication: GASTROOESOPHAGEAL REFLUX DISEASE
     Dosage: 40 MG, DAILY
  4. TRACLEER [Concomitant]
     Indication: PULMONARY ARTERIAL HYPERTENSION
     Dosage: 125 MG, 2X/DAY
     Dates: start: 20030101
  5. SPIRONOLACTONE [Concomitant]
     Indication: DIURETIC THERAPY
     Dosage: 25 MG, 2X/DAY

REACTIONS (2)
  - THERAPEUTIC RESPONSE UNEXPECTED [None]
  - DIARRHOEA [None]
